FAERS Safety Report 17480344 (Version 2)
Quarter: 2020Q2

REPORT INFORMATION
  Report Type: Spontaneous
  Country: US (occurrence: US)
  Receive Date: 20200228
  Receipt Date: 20200520
  Transmission Date: 20200713
  Serious: No
  Sender: FDA-Public Use
  Company Number: US-JNJFOC-20200214308

PATIENT
  Age: 63 Year
  Sex: Female
  Weight: 68.55 kg

DRUGS (1)
  1. WOMENS ROGAINE UNSCENTED [Suspect]
     Active Substance: MINOXIDIL
     Indication: ALOPECIA
     Dosage: DOSE: AS DIRECTED AND FREQUENCY: ONCE A DAY?THE PRODUCT IS LAST ADMINISTERED ON 03/FEB/2020.
     Route: 061

REACTIONS (1)
  - Application site pruritus [Recovered/Resolved]

NARRATIVE: CASE EVENT DATE: 20200203
